FAERS Safety Report 5831336-5 (Version None)
Quarter: 2008Q3

REPORT INFORMATION
  Report Type: 
  Country: None (occurrence: None)
  Receive Date: 20080801
  Receipt Date: 20080728
  Transmission Date: 20090109
  Serious: Yes (Hospitalization)
  Sender: FDA-Public Use
  Company Number: KR-BOEHRINGER INGELHEIM GMBH, GERMANY-2008-BP-11982YA

PATIENT
  Age: 71 Year
  Sex: Female

DRUGS (3)
  1. TAMSULOSIN HCL [Suspect]
     Route: 048
     Dates: start: 20080716, end: 20080718
  2. LEVOFLOXACIN [Concomitant]
     Dates: start: 20080716, end: 20080718
  3. POTASSIUM CITRATE [Concomitant]
     Dates: start: 20080716, end: 20080718

REACTIONS (2)
  - BLOOD PRESSURE DECREASED [None]
  - CEREBRAL INFARCTION [None]
